FAERS Safety Report 9210938 (Version 1)
Quarter: 2013Q2

REPORT INFORMATION
  Report Type: Report from Study
  Country: BR (occurrence: BR)
  Receive Date: 20130404
  Receipt Date: 20130404
  Transmission Date: 20140414
  Serious: Yes (Other)
  Sender: FDA-Public Use
  Company Number: BR-US-EMD SERONO, INC.-7202933

PATIENT
  Age: 45 Year
  Sex: Male

DRUGS (1)
  1. REBIF [Suspect]
     Indication: RELAPSING-REMITTING MULTIPLE SCLEROSIS
     Dates: start: 20060921

REACTIONS (3)
  - Dengue fever [Recovered/Resolved]
  - Pain [Recovered/Resolved]
  - Generalised erythema [Recovered/Resolved]
